FAERS Safety Report 9571081 (Version 1)
Quarter: 2013Q1

REPORT INFORMATION
  Report Type: Spontaneous
  Country: US (occurrence: None)
  Receive Date: 20120802
  Receipt Date: 20120802
  Transmission Date: 20140127
  Serious: Yes (Other)
  Sender: FDA-Public Use
  Company Number: AMAG201200805

PATIENT
  Age: 55 Year
  Sex: 0

DRUGS (1)
  1. FERAHEME (FERUMOXYTOL) INJECTION, 510MG [Suspect]

REACTIONS (8)
  - Unresponsive to stimuli [None]
  - Chest pain [None]
  - Dyspnoea [None]
  - Wheezing [None]
  - Cyanosis [None]
  - Nausea [None]
  - Vomiting [None]
  - Back pain [None]
